FAERS Safety Report 7198948-0 (Version None)
Quarter: 2010Q4

REPORT INFORMATION
  Report Type: 
  Country: None (occurrence: None)
  Receive Date: 20101227
  Receipt Date: 20101223
  Transmission Date: 20110411
  Serious: Yes (Other)
  Sender: FDA-Public Use
  Company Number: CH-BRISTOL-MYERS SQUIBB COMPANY-15189293

PATIENT
  Age: 32 Year
  Sex: Female

DRUGS (1)
  1. ORENCIA [Suspect]
     Indication: JUVENILE ARTHRITIS
     Dosage: 10-JAN.
     Route: 042
     Dates: end: 20101006

REACTIONS (1)
  - CROHN'S DISEASE [None]
